FAERS Safety Report 7350264-X (Version None)
Quarter: 2011Q1

REPORT INFORMATION
  Report Type: 
  Country: None (occurrence: None)
  Receive Date: 20110314
  Receipt Date: 20110228
  Transmission Date: 20110831
  Serious: Yes (Life-Threatening, Hospitalization, Disabling)
  Sender: FDA-Public Use
  Company Number: JP-JNJFOC-20100300943

PATIENT
  Sex: Female
  Weight: 66 kg

DRUGS (27)
  1. DOXIL [Suspect]
     Dosage: COURSE 5
     Route: 042
  2. ZOFRAN [Concomitant]
     Indication: PROPHYLAXIS
     Route: 048
  3. UNASYN [Concomitant]
     Route: 042
  4. SOLUTIO G [Concomitant]
     Route: 042
  5. DOXIL [Suspect]
     Dosage: COURSE 9
     Route: 042
  6. DOXIL [Suspect]
     Dosage: COURSE 7
     Route: 042
  7. GRANISETRON HCL [Concomitant]
     Indication: PROPHYLAXIS
     Route: 042
  8. MAGLAX [Concomitant]
     Route: 048
  9. SOLDEM 3A [Concomitant]
     Route: 042
  10. VITAMEDIN [Concomitant]
     Route: 042
  11. DOXIL [Suspect]
     Dosage: COURSE 6
     Route: 042
  12. DOXIL [Suspect]
     Dosage: COURSE 8
     Route: 042
  13. MAXIPIME [Concomitant]
     Route: 042
  14. DOXIL [Suspect]
     Indication: OVARIAN CANCER RECURRENT
     Dosage: COURSE 4
     Route: 042
  15. DOXIL [Suspect]
     Dosage: COURSE 1
     Route: 042
  16. VOLTAREN [Concomitant]
     Route: 054
  17. SOLUTIO G [Concomitant]
     Route: 042
  18. SOLDEM 3A [Concomitant]
     Route: 042
  19. DOXIL [Suspect]
     Dosage: COURSE 10
     Route: 042
  20. DOXIL [Suspect]
     Dosage: COURSE 2
     Route: 042
  21. DECADRON [Concomitant]
     Route: 048
  22. DOXIL [Suspect]
     Dosage: COURSE 3
     Route: 042
  23. NEUTROGIN [Concomitant]
     Route: 065
  24. DECADRON [Concomitant]
     Indication: PROPHYLAXIS
     Route: 042
  25. NEUROVITAN [Concomitant]
     Indication: PROPHYLAXIS
     Route: 048
  26. PURSENNID [Concomitant]
     Route: 048
  27. NEU-UP [Concomitant]
     Route: 065

REACTIONS (7)
  - VOMITING [None]
  - WHITE BLOOD CELL COUNT DECREASED [None]
  - C-REACTIVE PROTEIN INCREASED [None]
  - PYREXIA [None]
  - NEUTROPENIA [None]
  - INTESTINAL OBSTRUCTION [None]
  - DIARRHOEA [None]
